FAERS Safety Report 10435803 (Version 1)
Quarter: 2014Q3

REPORT INFORMATION
  Report Type: Spontaneous
  Country: US (occurrence: US)
  Receive Date: 20140908
  Receipt Date: 20140908
  Transmission Date: 20150326
  Serious: Yes (Other)
  Sender: FDA-Public Use
  Company Number: US-JNJFOC-20140824711

PATIENT

DRUGS (5)
  1. CISPLATIN. [Suspect]
     Active Substance: CISPLATIN
     Indication: THYROID CANCER
     Dosage: 100 MG/M2 IN SOME PATIENTS AND 60 MG/M2 IN SOME
     Route: 065
  2. RADIOTHERAPY [Suspect]
     Active Substance: RADIATION THERAPY
     Indication: THYROID CANCER
     Dosage: MEDIAN DOSE OF 66.3 GY
     Route: 065
  3. DOXORUBICIN [Suspect]
     Active Substance: DOXORUBICIN
     Indication: THYROID CANCER
     Route: 065
  4. ETOPOSIDE. [Suspect]
     Active Substance: ETOPOSIDE
     Indication: THYROID CANCER
     Route: 065
  5. PACLITAXEL. [Suspect]
     Active Substance: PACLITAXEL
     Indication: THYROID CANCER
     Route: 065

REACTIONS (7)
  - Dermatitis [Unknown]
  - Dysphonia [Unknown]
  - Dysphagia [Unknown]
  - Fatigue [Unknown]
  - Off label use [Unknown]
  - Dry mouth [Unknown]
  - Mucosal inflammation [Unknown]
